FAERS Safety Report 25689810 (Version 1)
Quarter: 2025Q3

REPORT INFORMATION
  Report Type: Spontaneous
  Country: CA (occurrence: CA)
  Receive Date: 20250818
  Receipt Date: 20250818
  Transmission Date: 20251021
  Serious: Yes (Other)
  Sender: HIKMA
  Company Number: CA-HIKMA PHARMACEUTICALS USA INC.-CA-H14001-25-09351

PATIENT
  Age: 29 Year
  Sex: Female
  Weight: 90.703 kg

DRUGS (5)
  1. PROGESTERONE [Suspect]
     Active Substance: PROGESTERONE
     Indication: Luteal phase deficiency
     Dosage: 50 MILLIGRAM, QD
     Route: 030
  2. PROGESTERONE [Suspect]
     Active Substance: PROGESTERONE
     Indication: In vitro fertilisation
  3. ASPIRIN [Concomitant]
     Active Substance: ASPIRIN
     Indication: Product used for unknown indication
     Route: 065
  4. ESTRADIOL [Concomitant]
     Active Substance: ESTRADIOL
     Indication: Product used for unknown indication
     Route: 065
  5. VITAMINS [Concomitant]
     Active Substance: VITAMINS
     Indication: Product used for unknown indication
     Route: 065

REACTIONS (8)
  - Erythema [Recovered/Resolved]
  - Feeling hot [Recovered/Resolved]
  - Hot flush [Recovered/Resolved]
  - Inflammation [Recovered/Resolved]
  - Injection site cellulitis [Recovered/Resolved]
  - Pain [Recovered/Resolved]
  - Pruritus [Recovered/Resolved]
  - Type IV hypersensitivity reaction [Recovered/Resolved]
